FAERS Safety Report 5707645-7 (Version None)
Quarter: 2008Q2

REPORT INFORMATION
  Report Type: 
  Country: None (occurrence: None)
  Receive Date: 20080416
  Receipt Date: 20080404
  Transmission Date: 20081010
  Serious: Yes (Hospitalization)
  Sender: FDA-Public Use
  Company Number: US-PFIZER INC-2008030486

PATIENT
  Sex: Male
  Weight: 81.4 kg

DRUGS (4)
  1. ALDACTONE [Suspect]
     Indication: OEDEMA
     Dosage: DAILY DOSE:25MG
     Route: 048
  2. TORSEMIDE [Suspect]
     Indication: OEDEMA
     Dosage: DAILY DOSE:80MG
     Route: 048
     Dates: start: 20070410, end: 20070501
  3. IRBESARTAN [Suspect]
     Indication: CARDIAC FAILURE CONGESTIVE
     Dosage: DAILY DOSE:37.5MG
     Route: 048
     Dates: start: 20070419, end: 20070430
  4. BLINDED SPIRONOLACTONE [Suspect]
     Indication: CARDIAC FAILURE CHRONIC
     Route: 048
     Dates: start: 20070404, end: 20070501

REACTIONS (5)
  - DEHYDRATION [None]
  - DIZZINESS [None]
  - HYPOTENSION [None]
  - ORTHOSTATIC HYPOTENSION [None]
  - WEIGHT DECREASED [None]
